FAERS Safety Report 18600177 (Version 1)
Quarter: 2020Q4

REPORT INFORMATION
  Report Type: Spontaneous
  Country: US (occurrence: US)
  Receive Date: 20201210
  Receipt Date: 20201210
  Transmission Date: 20210114
  Serious: No
  Sender: FDA-Public Use
  Company Number: US-BAYER-2020-271447

PATIENT
  Sex: Female

DRUGS (1)
  1. MIRENA [Suspect]
     Active Substance: LEVONORGESTREL
     Indication: UTERINE CANCER
     Dosage: 20 ?G PER DAY CONTINUOUSLY
     Route: 015

REACTIONS (2)
  - Off label use [None]
  - Product use in unapproved indication [None]
